FAERS Safety Report 22916717 (Version 2)
Quarter: 2023Q4

REPORT INFORMATION
  Report Type: Report from Study
  Country: PH (occurrence: PH)
  Receive Date: 20230907
  Receipt Date: 20231016
  Transmission Date: 20240109
  Serious: Yes (Hospitalization)
  Sender: FDA-Public Use
  Company Number: PH-OTSUKA-2023_023389

PATIENT
  Age: 86 Year
  Sex: Male

DRUGS (1)
  1. TOLVAPTAN [Suspect]
     Active Substance: TOLVAPTAN
     Indication: Cardiac failure
     Dosage: 0.5 DF, QOD (15 MG HALF TABLET EVERY OTHER DAY)
     Route: 048
     Dates: start: 202111

REACTIONS (6)
  - Insomnia [Recovered/Resolved]
  - Peripheral swelling [Unknown]
  - Peripheral swelling [Recovered/Resolved]
  - Inappropriate schedule of product administration [Unknown]
  - Wrong technique in product usage process [Unknown]
  - Underdose [Unknown]

NARRATIVE: CASE EVENT DATE: 20211101
